FAERS Safety Report 12455827 (Version 2)
Quarter: 2016Q3

REPORT INFORMATION
  Report Type: Spontaneous
  Country: US (occurrence: US)
  Receive Date: 20160610
  Receipt Date: 20160721
  Transmission Date: 20161109
  Serious: Yes (Other)
  Sender: FDA-Public Use
  Company Number: US-BAYER-2016-113716

PATIENT
  Age: 22 Year
  Sex: Female

DRUGS (3)
  1. ASCAL [Concomitant]
     Active Substance: CARBASALATE
     Dosage: UNK
     Dates: start: 2011
  2. MIRENA [Suspect]
     Active Substance: LEVONORGESTREL
     Dosage: 20 MCG/24HR, CONT
     Route: 015
     Dates: start: 201104, end: 20140512
  3. MINI-PILL [Concomitant]
     Active Substance: NORETHINDRONE
     Dosage: UNK

REACTIONS (5)
  - Pain [Not Recovered/Not Resolved]
  - Uterine perforation [Not Recovered/Not Resolved]
  - Scar [None]
  - Procedural pain [None]
  - Device dislocation [Not Recovered/Not Resolved]

NARRATIVE: CASE EVENT DATE: 20140512
